FAERS Safety Report 22037304 (Version 1)
Quarter: 2023Q1

REPORT INFORMATION
  Report Type: Report from Study
  Country: CO (occurrence: CO)
  Receive Date: 20230226
  Receipt Date: 20230226
  Transmission Date: 20230417
  Serious: Yes (Hospitalization, Other)
  Sender: FDA-Public Use
  Company Number: CO-ABBVIE-4317514

PATIENT
  Age: 59 Year
  Sex: Male
  Weight: 88 kg

DRUGS (1)
  1. ZEMPLAR [Suspect]
     Active Substance: PARICALCITOL
     Indication: Chronic kidney disease
     Dosage: STRENGTH 5 MICROGRAM
     Route: 042
     Dates: start: 20220912

REACTIONS (4)
  - Device related infection [Recovered/Resolved]
  - Arteriovenous fistula thrombosis [Recovering/Resolving]
  - Bacterial infection [Recovered/Resolved]
  - Fistula [Recovering/Resolving]

NARRATIVE: CASE EVENT DATE: 20221001
